FAERS Safety Report 23920010 (Version 2)
Quarter: 2024Q2

REPORT INFORMATION
  Report Type: Spontaneous
  Country: JP (occurrence: JP)
  Receive Date: 20240530
  Receipt Date: 20240603
  Transmission Date: 20240716
  Serious: Yes (Other)
  Sender: FDA-Public Use
  Company Number: JP-PFIZER INC-PV202400068936

PATIENT
  Age: 24 Year
  Sex: Female

DRUGS (1)
  1. PENICILLIN G BENZATHINE [Suspect]
     Active Substance: PENICILLIN G BENZATHINE
     Indication: Latent syphilis
     Dosage: 2400000 UNITS (FOR A TOTAL OF 3 TIMES)
     Route: 030
     Dates: start: 202310

REACTIONS (3)
  - Obstructed labour [Unknown]
  - Maternal exposure during pregnancy [Recovered/Resolved]
  - Jarisch-Herxheimer reaction [Recovered/Resolved]

NARRATIVE: CASE EVENT DATE: 20231001
